FAERS Safety Report 20893791 (Version 3)
Quarter: 2022Q2

REPORT INFORMATION
  Report Type: Spontaneous
  Country: IE (occurrence: IE)
  Receive Date: 20220531
  Receipt Date: 20220623
  Transmission Date: 20220720
  Serious: Yes (Life-Threatening, Other)
  Sender: FDA-Public Use
  Company Number: None

PATIENT
  Age: 60 Year
  Sex: Female
  Weight: 63 kg

DRUGS (2)
  1. SINGULAIR [Suspect]
     Active Substance: MONTELUKAST SODIUM
     Indication: Rhinitis perennial
     Dosage: 10 MILLIGRAM, FORMULATION REPORTED AS FILM-COATED TABLETS, STOPPED ON OR ABOUT 05/MAY/2017 AND RESTA
     Route: 048
     Dates: start: 20110505, end: 20170505
  2. SINGULAIR [Suspect]
     Active Substance: MONTELUKAST SODIUM
     Dosage: STOPPED ON OR ABOUT 05/MAY/2017 AND RESTARTED 3 DAYS LATER
     Dates: start: 20170508

REACTIONS (5)
  - Withdrawal syndrome [Not Recovered/Not Resolved]
  - Suicidal ideation [Not Recovered/Not Resolved]
  - Derealisation [Not Recovered/Not Resolved]
  - Loss of personal independence in daily activities [Not Recovered/Not Resolved]
  - Feeling abnormal [Not Recovered/Not Resolved]

NARRATIVE: CASE EVENT DATE: 20170507
